FAERS Safety Report 19447336 (Version 2)
Quarter: 2021Q3

REPORT INFORMATION
  Report Type: Spontaneous
  Country: JP (occurrence: JP)
  Receive Date: 20210622
  Receipt Date: 20210707
  Transmission Date: 20211014
  Serious: Yes (Death, Other)
  Sender: FDA-Public Use
  Company Number: JP-EXELIXIS-CABO-21041603

PATIENT
  Age: 80 Year
  Sex: Male

DRUGS (1)
  1. CABOMETYX [Suspect]
     Active Substance: CABOZANTINIB S-MALATE
     Indication: CLEAR CELL RENAL CELL CARCINOMA
     Dosage: UNK
     Route: 048
     Dates: start: 202101, end: 202102

REACTIONS (4)
  - Deep vein thrombosis [Unknown]
  - Mobility decreased [Unknown]
  - Pulmonary infarction [Unknown]
  - Death [Fatal]

NARRATIVE: CASE EVENT DATE: 202101
